FAERS Safety Report 4722303-3 (Version None)
Quarter: 2005Q3

REPORT INFORMATION
  Report Type: 
  Country: None (occurrence: None)
  Receive Date: 20050722
  Receipt Date: 20041018
  Transmission Date: 20060218
  Serious: No
  Sender: FDA-Public Use
  Company Number: US-GLAXOSMITHKLINE-A0530229A

PATIENT
  Age: 79 Year
  Sex: Female

DRUGS (6)
  1. AVANDIA [Suspect]
     Dosage: 4MG PER DAY
     Route: 048
     Dates: start: 20040101
  2. AVAPRO [Concomitant]
  3. LEVOXYL [Concomitant]
  4. CELEBREX [Concomitant]
  5. LIPITOR [Concomitant]
  6. OXYCONTIN [Concomitant]

REACTIONS (3)
  - COUGH [None]
  - DYSPEPSIA [None]
  - FLATULENCE [None]
